FAERS Safety Report 4732580-0 (Version None)
Quarter: 2005Q3

REPORT INFORMATION
  Report Type: 
  Country: None (occurrence: None)
  Receive Date: 20050801
  Receipt Date: 20050720
  Transmission Date: 20060218
  Serious: Yes (Other)
  Sender: FDA-Public Use
  Company Number: 2005106734

PATIENT
  Age: 33 Year
  Sex: Female

DRUGS (4)
  1. DEPO-PROVERA [Suspect]
     Indication: CONTRACEPTION
     Dosage: SEE IMAGE
     Route: 030
     Dates: start: 20010601, end: 20010601
  2. DEPO-PROVERA [Suspect]
     Indication: CONTRACEPTION
     Dosage: SEE IMAGE
     Route: 030
     Dates: start: 20050101, end: 20050101
  3. FLONASE [Concomitant]
  4. VALTREX [Concomitant]

REACTIONS (3)
  - ASTHMA [None]
  - BONE DENSITY DECREASED [None]
  - ENDOMETRIOSIS [None]
